FAERS Safety Report 7700681-0 (Version None)
Quarter: 2011Q3

REPORT INFORMATION
  Report Type: 
  Country: None (occurrence: None)
  Receive Date: 20110822
  Receipt Date: 20110818
  Transmission Date: 20111222
  Serious: Yes (Death)
  Sender: FDA-Public Use
  Company Number: VE-PFIZER INC-2011185860

PATIENT
  Age: 86 Year
  Sex: Male

DRUGS (2)
  1. REMERON [Concomitant]
     Indication: DEPRESSION
     Dosage: 15 MG, UNK
     Route: 048
     Dates: start: 20110615, end: 20110720
  2. ZOLOFT [Suspect]
     Indication: DEPRESSION
     Dosage: 50 MG, 1X/DAY
     Route: 048
     Dates: start: 20110615, end: 20110720

REACTIONS (1)
  - RESPIRATORY ARREST [None]
